FAERS Safety Report 7328014-2 (Version None)
Quarter: 2011Q1

REPORT INFORMATION
  Report Type: 
  Country: None (occurrence: None)
  Receive Date: 20110225
  Receipt Date: 20110225
  Transmission Date: 20110831
  Serious: No
  Sender: FDA-Public Use
  Company Number: None

PATIENT
  Age: 48 Year
  Sex: Female

DRUGS (4)
  1. CLONAZEPAM [Concomitant]
  2. ESTINYL ESTRADIOL/ METHYL [Concomitant]
  3. LEVOTHYROXINE [Concomitant]
  4. GILENYA [Suspect]
     Indication: MULTIPLE SCLEROSIS
     Dosage: 0.5MG QD PO
     Route: 048
     Dates: start: 20110114, end: 20110222

REACTIONS (2)
  - FATIGUE [None]
  - BRADYCARDIA [None]
